FAERS Safety Report 8030247-7 (Version None)
Quarter: 2012Q1

REPORT INFORMATION
  Report Type: 
  Country: None (occurrence: None)
  Receive Date: 20120109
  Receipt Date: 20120106
  Transmission Date: 20120608
  Serious: No
  Sender: FDA-Public Use
  Company Number: US-TEVA-315801USA

PATIENT
  Sex: Female
  Weight: 88.53 kg

DRUGS (4)
  1. PLAN B ONE-STEP [Suspect]
     Indication: POST COITAL CONTRACEPTION
     Dosage: 1.5 MILLIGRAM;
     Route: 048
     Dates: start: 20111225, end: 20111225
  2. DEXEDRINE [Concomitant]
     Indication: ATTENTION DEFICIT/HYPERACTIVITY DISORDER
  3. ABILIFY [Concomitant]
     Indication: BIPOLAR DISORDER
  4. LAMICTAL [Concomitant]
     Indication: BIPOLAR DISORDER

REACTIONS (2)
  - ABDOMINAL PAIN [None]
  - MENSTRUATION IRREGULAR [None]
